FAERS Safety Report 8912109 (Version 2)
Quarter: 2012Q4

REPORT INFORMATION
  Report Type: 
  Country: US (occurrence: US)
  Receive Date: 20121115
  Receipt Date: 20121213
  Transmission Date: 20130627
  Serious: Yes (Other)
  Sender: FDA-Public Use
  Company Number: US-PFIZER INC-2012285856

PATIENT
  Age: 75 Year
  Sex: Female
  Weight: 89.34 kg

DRUGS (4)
  1. LIPITOR [Suspect]
     Indication: HIGH CHOLESTEROL
     Dosage: 20 mg, daily
     Dates: end: 201211
  2. LIPITOR [Suspect]
     Indication: BLOOD PRESSURE HIGH
     Dosage: 10 mg, UNK daily
  3. COUMADIN [Suspect]
     Indication: ATRIAL FIBRILLATION
     Dosage: UNK
  4. FLECAINIDE [Concomitant]
     Indication: ATRIAL FIBRILLATION
     Dosage: 50 mg, 2x/day

REACTIONS (2)
  - Atrial fibrillation [Unknown]
  - Haemorrhage [Unknown]
